FAERS Safety Report 8565653-5 (Version None)
Quarter: 2012Q3

REPORT INFORMATION
  Report Type: 
  Country: None (occurrence: None)
  Receive Date: 20120803
  Receipt Date: 20120723
  Transmission Date: 20120928
  Serious: Yes (Disabling, Other)
  Sender: FDA-Public Use
  Company Number: US-MERCK-1205USA02868

PATIENT

DRUGS (2)
  1. FOSAMAX [Suspect]
     Indication: OSTEOPOROSIS
     Dosage: UNK
     Route: 048
     Dates: start: 20041229, end: 20101201
  2. FOSAMAX [Suspect]
     Dosage: 70 MG, QW
     Route: 048

REACTIONS (10)
  - LUNG CANCER METASTATIC [None]
  - HYPERTENSION [None]
  - BONE PAIN [None]
  - LOW TURNOVER OSTEOPATHY [None]
  - PAIN IN EXTREMITY [None]
  - METASTASES TO BONE [None]
  - PAIN [None]
  - LOWER LIMB FRACTURE [None]
  - FEMUR FRACTURE [None]
  - ENDODONTIC PROCEDURE [None]
